FAERS Safety Report 7191777-3 (Version None)
Quarter: 2010Q4

REPORT INFORMATION
  Report Type: 
  Country: None (occurrence: None)
  Receive Date: 20101223
  Receipt Date: 20101201
  Transmission Date: 20110411
  Serious: Yes (Other)
  Sender: FDA-Public Use
  Company Number: US-BAYER-2010-003168

PATIENT
  Age: 24 Year
  Sex: Female

DRUGS (2)
  1. MAGNEVIST [Suspect]
     Dosage: 20 ML, ONCE
     Route: 042
     Dates: start: 20101130, end: 20101130
  2. MAGNEVIST [Suspect]

REACTIONS (2)
  - COUGH [None]
  - DYSPHAGIA [None]
